FAERS Safety Report 5563485-3 (Version None)
Quarter: 2007Q4

REPORT INFORMATION
  Report Type: 
  Country: None (occurrence: None)
  Receive Date: 20071217
  Receipt Date: 20070604
  Transmission Date: 20080405
  Serious: No
  Sender: FDA-Public Use
  Company Number: US-ASTRAZENECA-2007UW13448

PATIENT
  Age: 58 Year
  Sex: Male
  Weight: 71.2 kg

DRUGS (7)
  1. CRESTOR [Suspect]
     Indication: BLOOD CHOLESTEROL INCREASED
     Route: 048
     Dates: start: 20070301
  2. ASCORBIC ACID [Concomitant]
  3. MULTI-VITAMIN [Concomitant]
  4. COENZYME Q10 [Concomitant]
  5. MSN [Concomitant]
  6. GLUCOSAMINE [Concomitant]
  7. DRY EYE SUPPLEMENT [Concomitant]

REACTIONS (2)
  - BLOOD TRIGLYCERIDES INCREASED [None]
  - HIGH DENSITY LIPOPROTEIN DECREASED [None]
